FAERS Safety Report 10580062 (Version 1)
Quarter: 2014Q4

REPORT INFORMATION
  Report Type: Report from Study
  Country: US (occurrence: US)
  Receive Date: 20141112
  Receipt Date: 20141112
  Transmission Date: 20150529
  Serious: Yes (Other)
  Sender: FDA-Public Use
  Company Number: US-ASTRAZENECA-2014SE83807

PATIENT
  Age: 459 Month
  Sex: Male
  Weight: 108.9 kg

DRUGS (3)
  1. CLONAZAPAM [Concomitant]
     Indication: OBSESSIVE-COMPULSIVE DISORDER
     Route: 048
  2. SEROQUEL XR [Suspect]
     Active Substance: QUETIAPINE FUMARATE
     Indication: BIPOLAR DISORDER
     Route: 048
  3. CLONAZAPAM [Concomitant]
     Indication: BIPOLAR DISORDER
     Route: 048

REACTIONS (7)
  - Tremor [Unknown]
  - Bone cyst [Not Recovered/Not Resolved]
  - Asthenia [Unknown]
  - Thirst [Unknown]
  - Mental disorder [Unknown]
  - Adverse event [Unknown]
  - Drug dose omission [Unknown]

NARRATIVE: CASE EVENT DATE: 201409
